FAERS Safety Report 7769937-X (Version None)
Quarter: 2011Q3

REPORT INFORMATION
  Report Type: 
  Country: None (occurrence: None)
  Receive Date: 20110920
  Receipt Date: 20110905
  Transmission Date: 20111222
  Serious: Yes (Death, Hospitalization, Other)
  Sender: FDA-Public Use
  Company Number: AUR-APL-2011-05053

PATIENT
  Age: 61 Year
  Sex: Female
  Weight: 66 kg

DRUGS (25)
  1. QUETIAPINE FUMARATE [Suspect]
     Indication: PRODUCT USED FOR UNKNOWN INDICATION
     Dosage: (400 MG, AT BED TIME)
  2. SUMATRIPTAN SUCCINATE [Suspect]
     Indication: PRODUCT USED FOR UNKNOWN INDICATION
     Dosage: (50 MG, AS REQUIRED)
  3. ALBUTEROL SULFATE [Suspect]
     Indication: PRODUCT USED FOR UNKNOWN INDICATION
     Dosage: (100 MCG, AS REQUIRED)
  4. HYDROXYCHLOROQUINE SULFATE [Suspect]
     Indication: PRODUCT USED FOR UNKNOWN INDICATION
     Dosage: 400 MG (200 MG, 2 IN 1 D)
  5. ATORVASTATIN CALCIUM [Concomitant]
  6. CYCLOBENZAPRINE [Suspect]
     Indication: PRODUCT USED FOR UNKNOWN INDICATION
     Dosage: (10 MG, AS REQUIRED)
  7. FLUCONAZOLE [Suspect]
     Indication: PRODUCT USED FOR UNKNOWN INDICATION
     Dosage: (150 MG, 5-6 TIMES IN PAST 6 MONTHS)
  8. FUROSEMIDE [Suspect]
     Indication: PRODUCT USED FOR UNKNOWN INDICATION
     Dosage: (40 MG, 1D)
  9. BUDESONIDE [Suspect]
     Indication: PRODUCT USED FOR UNKNOWN INDICATION
     Dosage: 400 MCG (200 MCG, 2 IN 1 D), INHALATION
     Route: 055
  10. ESTROGENS CONJUGATED [Suspect]
     Indication: PRODUCT USED FOR UNKNOWN INDICATION
     Dosage: (1.3 MG, 1 D)
  11. LORAZEPAM [Concomitant]
  12. RISPERIDONE [Suspect]
     Indication: PRODUCT USED FOR UNKNOWN INDICATION
     Dosage: (2 MG, IN THE MORNING)
  13. TRAZODONE HCL [Suspect]
     Indication: PRODUCT USED FOR UNKNOWN INDICATION
     Dosage: (200 MG, AT BED TIME)
  14. CELECOXIB [Suspect]
     Indication: PRODUCT USED FOR UNKNOWN INDICATION
     Dosage: 400 MG (200 MG, 2 IN 1 D)
  15. DESIPRAMINE HCL [Suspect]
     Indication: PRODUCT USED FOR UNKNOWN INDICATION
     Dosage: 50 MG (25 MG, 2 IN 1 D)
  16. ALENDRONATE SODIUM [Suspect]
     Indication: PRODUCT USED FOR UNKNOWN INDICATION
     Dosage: (70 MG, 1 WK)
  17. OMEPRAZOLE [Suspect]
     Indication: PRODUCT USED FOR UNKNOWN INDICATION
     Dosage: 40 MG (20 MG, 2 IN 1 D)
  18. VENLAFAXINE HCL [Suspect]
     Indication: PRODUCT USED FOR UNKNOWN INDICATION
     Dosage: 150 MG (75 MG, 2 IN 1 D)
  19. HYDROXYZINE HYDROCHLORIDE [Suspect]
     Indication: PRODUCT USED FOR UNKNOWN INDICATION
     Dosage: 50 MG (25 MG, 2 IN 1 D)
  20. LOPERAMIDE [Suspect]
     Indication: PRODUCT USED FOR UNKNOWN INDICATION
     Dosage: (2 MG, AS REQUIRED)
  21. PREDNISONE TAB [Suspect]
     Indication: PRODUCT USED FOR UNKNOWN INDICATION
     Dosage: 7.5 MG (7.5 MG, 1 IN 1 D)
  22. MOMETASONE FUROATE [Suspect]
     Indication: PRODUCT USED FOR UNKNOWN INDICATION
     Dosage: (0.05 %, 2 SPRAY TWICE)
  23. HALOPERIDOL [Suspect]
     Indication: PRODUCT USED FOR UNKNOWN INDICATION
     Dosage: (20 MG, AT BED TIME)
  24. LEVOTHYROXINE SODIUM [Suspect]
     Indication: PRODUCT USED FOR UNKNOWN INDICATION
     Dosage: (50 MCG, 1 D)
  25. BACTRIM [Suspect]
     Indication: PRODUCT USED FOR UNKNOWN INDICATION
     Dosage: 160/800 UG (1 D)

REACTIONS (41)
  - LIVEDO RETICULARIS [None]
  - NEUROLEPTIC MALIGNANT SYNDROME [None]
  - RESPIRATORY FAILURE [None]
  - NORMETANEPHRINE URINE INCREASED [None]
  - PERIPHERAL COLDNESS [None]
  - RHABDOMYOLYSIS [None]
  - SERUM SEROTONIN DECREASED [None]
  - METABOLIC ACIDOSIS [None]
  - CYANOSIS [None]
  - ABDOMINAL DISTENSION [None]
  - GENERAL PHYSICAL HEALTH DETERIORATION [None]
  - ANTIDEPRESSANT DRUG LEVEL INCREASED [None]
  - ANTIPSYCHOTIC DRUG LEVEL INCREASED [None]
  - TACHYCARDIA [None]
  - TACHYPNOEA [None]
  - ANXIETY [None]
  - HYPOXIA [None]
  - BLOOD CATECHOLAMINES INCREASED [None]
  - HEART RATE IRREGULAR [None]
  - HYPERHIDROSIS [None]
  - METABOLIC DISORDER [None]
  - METANEPHRINE URINE INCREASED [None]
  - FALL [None]
  - MALAISE [None]
  - SEPTIC SHOCK [None]
  - ELECTROLYTE IMBALANCE [None]
  - RENAL FAILURE [None]
  - APALLIC SYNDROME [None]
  - PARKINSONISM [None]
  - AUTONOMIC NERVOUS SYSTEM IMBALANCE [None]
  - DEHYDRATION [None]
  - CONTUSION [None]
  - ASPIRATION [None]
  - PAIN [None]
  - LACERATION [None]
  - 5-HYDROXYINDOLACETIC ACID DECREASED [None]
  - AGITATION [None]
  - LOSS OF CONSCIOUSNESS [None]
  - HYPOXIC-ISCHAEMIC ENCEPHALOPATHY [None]
  - MENTAL STATUS CHANGES [None]
  - CATECHOLAMINES URINE INCREASED [None]
